FAERS Safety Report 18904392 (Version 4)
Quarter: 2021Q4

REPORT INFORMATION
  Report Type: Report from Study
  Country: US (occurrence: US)
  Receive Date: 20210217
  Receipt Date: 20211025
  Transmission Date: 20220303
  Serious: Yes (Hospitalization, Other)
  Sender: FDA-Public Use
  Company Number: US-TAKEDA-US202007167

PATIENT
  Age: 40 Year
  Sex: Female
  Weight: 91 kg

DRUGS (27)
  1. HUMAN IMMUNOGLOBULIN G [Suspect]
     Active Substance: HUMAN IMMUNOGLOBULIN G
     Indication: Chronic inflammatory demyelinating polyradiculoneuropathy
     Dosage: 30 GRAM, Q2WEEKS
     Route: 042
     Dates: start: 20170228
  2. HUMAN IMMUNOGLOBULIN G [Suspect]
     Active Substance: HUMAN IMMUNOGLOBULIN G
     Dosage: 30 GRAM, Q2WEEKS
     Route: 042
     Dates: start: 20170302
  3. ACETAMINOPHEN [Concomitant]
     Active Substance: ACETAMINOPHEN
     Route: 065
  4. DIPHENHYDRAMINE [Concomitant]
     Active Substance: DIPHENHYDRAMINE
     Route: 065
  5. HEPARIN [Concomitant]
     Active Substance: HEPARIN SODIUM
     Route: 065
  6. KETOROLAC [Concomitant]
     Active Substance: KETOROLAC TROMETHAMINE
     Route: 065
  7. LIDOCAINE [Concomitant]
     Active Substance: LIDOCAINE
     Route: 065
  8. SODIUM CHLORIDE [Concomitant]
     Active Substance: SODIUM CHLORIDE
     Route: 065
  9. SODIUM CHLORIDE [Concomitant]
     Active Substance: SODIUM CHLORIDE
     Route: 065
  10. SYNTHROID [Concomitant]
     Active Substance: LEVOTHYROXINE SODIUM
     Route: 065
  11. IMURAN [Concomitant]
     Active Substance: AZATHIOPRINE
     Route: 065
  12. TOPAMAX [Concomitant]
     Active Substance: TOPIRAMATE
     Route: 065
  13. LYRICA [Concomitant]
     Active Substance: PREGABALIN
     Route: 065
  14. OXYMORPHONE [Concomitant]
     Active Substance: OXYMORPHONE
     Route: 065
  15. OMEPRAZOLE [Concomitant]
     Active Substance: OMEPRAZOLE
     Route: 065
  16. ZOFRAN [Concomitant]
     Active Substance: ONDANSETRON HYDROCHLORIDE
     Route: 065
  17. DICLOFENAC [Concomitant]
     Active Substance: DICLOFENAC
     Route: 065
  18. ZANAFLEX [Concomitant]
     Active Substance: TIZANIDINE HYDROCHLORIDE
     Route: 065
  19. VIMPAT [Concomitant]
     Active Substance: LACOSAMIDE
     Route: 065
  20. ERGOTAMINE AND CAFFEINE [Concomitant]
     Route: 065
  21. FIORICET [Concomitant]
     Active Substance: ACETAMINOPHEN\BUTALBITAL\CAFFEINE
     Route: 065
  22. TROMETHAMINE [Concomitant]
     Active Substance: TROMETHAMINE
     Route: 065
  23. ELIQUIS [Concomitant]
     Active Substance: APIXABAN
     Route: 065
  24. EPINEPHRINE [Concomitant]
     Active Substance: EPINEPHRINE
     Route: 065
  25. OMEPRAZOLE\SODIUM BICARBONATE [Concomitant]
     Active Substance: OMEPRAZOLE\SODIUM BICARBONATE
     Route: 065
  26. CHOLECALCIFEROL [Concomitant]
     Active Substance: CHOLECALCIFEROL
  27. ELIQUIS [Concomitant]
     Active Substance: APIXABAN

REACTIONS (10)
  - Ill-defined disorder [Unknown]
  - COVID-19 [Unknown]
  - Condition aggravated [Unknown]
  - Pulmonary embolism [Unknown]
  - Fall [Unknown]
  - Hypoaesthesia [Unknown]
  - Feeling abnormal [Unknown]
  - Insurance issue [Unknown]
  - Product dose omission issue [Unknown]
  - Inappropriate schedule of product administration [Unknown]

NARRATIVE: CASE EVENT DATE: 20210109
